FAERS Safety Report 5749969-3 (Version None)
Quarter: 2008Q2

REPORT INFORMATION
  Report Type: 
  Country: None (occurrence: None)
  Receive Date: 20080527
  Receipt Date: 20080522
  Transmission Date: 20081010
  Serious: Yes (Life-Threatening)
  Sender: FDA-Public Use
  Company Number: US-ASTRAZENECA-2008UW03998

PATIENT
  Age: 31 Year
  Sex: Female
  Weight: 68.6 kg

DRUGS (5)
  1. SEROQUEL [Suspect]
     Indication: BIPOLAR DISORDER
     Dosage: 100 MG TO 200 MG
     Route: 048
     Dates: start: 20080222, end: 20080224
  2. LAMICTAL [Concomitant]
     Indication: BIPOLAR DISORDER
     Route: 048
  3. TOPAMAX [Concomitant]
     Indication: CONVULSION
     Dosage: 100 Q AM AND 200 Q HS
  4. ZONEGRAN [Concomitant]
     Indication: CONVULSION
  5. XANAX [Concomitant]
     Dosage: ON AND OFF

REACTIONS (5)
  - AGGRESSION [None]
  - ANGER [None]
  - CONVULSIVE THRESHOLD LOWERED [None]
  - IRRITABILITY [None]
  - SUICIDAL IDEATION [None]
